FAERS Safety Report 24127710 (Version 1)
Quarter: 2024Q3

REPORT INFORMATION
  Report Type: Spontaneous
  Country: US (occurrence: US)
  Receive Date: 20240723
  Receipt Date: 20240723
  Transmission Date: 20241017
  Serious: No
  Sender: SANOFI AVENTIS
  Company Number: US-SANOFI-02137524

PATIENT
  Age: 39 Year
  Sex: Female

DRUGS (3)
  1. DUPIXENT [Suspect]
     Active Substance: DUPILUMAB
     Indication: Eczema
     Dosage: 300 MG, QOW
     Route: 065
     Dates: start: 2019
  2. BRAFTOVI [Concomitant]
     Active Substance: ENCORAFENIB
  3. ALBUTEROL [Concomitant]
     Active Substance: ALBUTEROL

REACTIONS (3)
  - Infection [Recovered/Resolved]
  - Lymphoedema [Not Recovered/Not Resolved]
  - Injection site hypertrophy [Unknown]

NARRATIVE: CASE EVENT DATE: 20200101
